FAERS Safety Report 23342221 (Version 4)
Quarter: 2024Q1

REPORT INFORMATION
  Report Type: Spontaneous
  Country: US (occurrence: US)
  Receive Date: 20231227
  Receipt Date: 20240209
  Transmission Date: 20240410
  Serious: No
  Sender: FDA-Public Use
  Company Number: US-PFIZER INC-PV202300197669

PATIENT
  Age: 66 Year
  Sex: Female
  Weight: 49.9 kg

DRUGS (1)
  1. ESTRING [Suspect]
     Active Substance: ESTRADIOL
     Indication: Uterine disorder
     Dosage: UNK, EVERY 3 MONTHS
     Route: 067

REACTIONS (5)
  - Medical device discomfort [Unknown]
  - Device issue [Unknown]
  - Device leakage [Unknown]
  - Device physical property issue [Unknown]
  - Off label use [Unknown]
